FAERS Safety Report 18277577 (Version 1)
Quarter: 2020Q3

REPORT INFORMATION
  Report Type: Spontaneous
  Country: CN (occurrence: CN)
  Receive Date: 20200917
  Receipt Date: 20200917
  Transmission Date: 20201103
  Serious: Yes (Hospitalization, Other)
  Sender: FDA-Public Use
  Company Number: CN-PFIZER INC-2020357780

PATIENT
  Age: 46 Year
  Sex: Female
  Weight: 80 kg

DRUGS (2)
  1. LIPITOR [Suspect]
     Active Substance: ATORVASTATIN CALCIUM
     Indication: ACUTE MYOCARDIAL INFARCTION
  2. LIPITOR [Suspect]
     Active Substance: ATORVASTATIN CALCIUM
     Indication: CORONARY ARTERY DISEASE
     Dosage: 20 MG, 1X/DAY
     Route: 048
     Dates: start: 20200724, end: 20200910

REACTIONS (3)
  - Transaminases increased [Recovering/Resolving]
  - Coronary artery disease [Unknown]
  - Condition aggravated [Unknown]

NARRATIVE: CASE EVENT DATE: 20200901
